FAERS Safety Report 16371461 (Version 16)
Quarter: 2023Q2

REPORT INFORMATION
  Report Type: Spontaneous
  Country: US (occurrence: US)
  Receive Date: 20190530
  Receipt Date: 20230602
  Transmission Date: 20230721
  Serious: No
  Sender: FDA-Public Use
  Company Number: US-PFIZER INC-2019230291

PATIENT
  Age: 64 Year
  Sex: Female
  Weight: 67.12 kg

DRUGS (4)
  1. PREMARIN [Suspect]
     Active Substance: ESTROGENS, CONJUGATED
     Indication: Hot flush
     Dosage: 0.625 MG, 1X/DAY
     Route: 048
     Dates: start: 2006
  2. PREMARIN [Suspect]
     Active Substance: ESTROGENS, CONJUGATED
     Indication: Night sweats
     Dosage: 0.625 MG, 1X/DAY
     Dates: start: 2008
  3. PREMARIN [Suspect]
     Active Substance: ESTROGENS, CONJUGATED
     Indication: Hyperhidrosis
     Dosage: 0.625 MG, 1X/DAY (SINCE 2017 OR 2016)
     Route: 048
  4. PREMARIN [Suspect]
     Active Substance: ESTROGENS, CONJUGATED
     Dosage: 0.625 MG, 1X/DAY
     Route: 048
     Dates: start: 20230406

REACTIONS (4)
  - Malaise [Recovered/Resolved]
  - Blood glucose increased [Unknown]
  - Fatigue [Unknown]
  - Somnolence [Unknown]
